FAERS Safety Report 25211494 (Version 3)
Quarter: 2025Q3

REPORT INFORMATION
  Report Type: Spontaneous
  Country: US (occurrence: US)
  Receive Date: 20250418
  Receipt Date: 20250916
  Transmission Date: 20251020
  Serious: Yes (Other)
  Sender: JOHNSON AND JOHNSON
  Company Number: US-JNJFOC-20250413297

PATIENT
  Age: 46 Year
  Sex: Male

DRUGS (11)
  1. OPSUMIT [Suspect]
     Active Substance: MACITENTAN
     Indication: Product used for unknown indication
     Route: 048
     Dates: start: 202502
  2. EPCLUSA [Suspect]
     Active Substance: SOFOSBUVIR\VELPATASVIR
     Indication: Hepatitis
     Route: 065
  3. METHOCARBAMOL [Suspect]
     Active Substance: METHOCARBAMOL
     Indication: Product used for unknown indication
     Route: 065
  4. REMODULIN [Interacting]
     Active Substance: TREPROSTINIL
     Indication: Pulmonary arterial hypertension
     Route: 042
     Dates: start: 202412
  5. REMODULIN [Interacting]
     Active Substance: TREPROSTINIL
     Route: 042
     Dates: start: 20241206
  6. REMODULIN [Interacting]
     Active Substance: TREPROSTINIL
     Route: 042
     Dates: start: 202412
  7. REMODULIN [Interacting]
     Active Substance: TREPROSTINIL
     Route: 042
  8. REMODULIN [Interacting]
     Active Substance: TREPROSTINIL
     Route: 042
  9. REMODULIN [Interacting]
     Active Substance: TREPROSTINIL
     Route: 042
  10. REMODULIN [Interacting]
     Active Substance: TREPROSTINIL
     Route: 048
  11. HYDROXYCHLOROQUINE [Concomitant]
     Active Substance: HYDROXYCHLOROQUINE
     Indication: Product used for unknown indication

REACTIONS (16)
  - Lyme disease [Unknown]
  - Headache [Not Recovered/Not Resolved]
  - Pain in jaw [Not Recovered/Not Resolved]
  - Diarrhoea [Not Recovered/Not Resolved]
  - Arthralgia [Not Recovered/Not Resolved]
  - Dyspnoea [Unknown]
  - Pain in extremity [Not Recovered/Not Resolved]
  - Asthenia [Unknown]
  - Somnolence [Not Recovered/Not Resolved]
  - Mass [Not Recovered/Not Resolved]
  - Arthritis [Unknown]
  - Hypertension [Recovering/Resolving]
  - Dyspnoea exertional [Unknown]
  - Pain [Not Recovered/Not Resolved]
  - Hypoaesthesia [Unknown]
  - Drug interaction [Unknown]
